FAERS Safety Report 18064175 (Version 1)
Quarter: 2020Q3

REPORT INFORMATION
  Report Type: Spontaneous
  Country: US (occurrence: US)
  Receive Date: 20200724
  Receipt Date: 20200724
  Transmission Date: 20201103
  Serious: No
  Sender: FDA-Public Use
  Company Number: US-GLAXOSMITHKLINE-US2020133249

PATIENT
  Sex: Male

DRUGS (2)
  1. DUPIXENT [Concomitant]
     Active Substance: DUPILUMAB
  2. BREO ELLIPTA [Suspect]
     Active Substance: FLUTICASONE FUROATE\VILANTEROL TRIFENATATE
     Indication: CHRONIC OBSTRUCTIVE PULMONARY DISEASE
     Dosage: 1 PUFF(S), AS REQUIRED

REACTIONS (6)
  - Pain [Unknown]
  - Expired product administered [Recovered/Resolved]
  - Sinus disorder [Unknown]
  - Pruritus [Unknown]
  - Amnesia [Unknown]
  - Peripheral swelling [Unknown]
